FAERS Safety Report 19876796 (Version 2)
Quarter: 2021Q4

REPORT INFORMATION
  Report Type: Other
  Country: US (occurrence: US)
  Receive Date: 20210924
  Receipt Date: 20211008
  Transmission Date: 20220303
  Serious: Yes (Other)
  Sender: FDA-Public Use
  Company Number: US-ROCHE-2845165

PATIENT
  Sex: Female

DRUGS (16)
  1. XELODA [Suspect]
     Active Substance: CAPECITABINE
     Indication: Colorectal cancer metastatic
     Dosage: TAKE 4 TABLETS (2000MG) BY MOUTH TWICE A DAY ON DAYS 1-14 OF EACH 21 DAY CYCLE FOR 8 CYCLES
     Route: 048
  2. XELODA [Suspect]
     Active Substance: CAPECITABINE
     Indication: Colon cancer
  3. COMPAZINE [Concomitant]
     Active Substance: PROCHLORPERAZINE MALEATE
     Route: 048
  4. METFORMIN [Concomitant]
     Active Substance: METFORMIN HYDROCHLORIDE
  5. PLAVIX [Concomitant]
     Active Substance: CLOPIDOGREL BISULFATE
     Route: 048
  6. ZOFRAN [Concomitant]
     Active Substance: ONDANSETRON HYDROCHLORIDE
     Route: 048
  7. ALLOPURINOL [Concomitant]
     Active Substance: ALLOPURINOL
     Route: 048
  8. ATORVASTATIN [Concomitant]
     Active Substance: ATORVASTATIN
     Route: 048
  9. BENADRYL [Concomitant]
     Active Substance: DIPHENHYDRAMINE HYDROCHLORIDE
     Route: 048
  10. CALCIUM [Concomitant]
     Active Substance: CALCIUM
     Route: 048
  11. LISINOPRIL [Concomitant]
     Active Substance: LISINOPRIL
     Route: 048
  12. POTASSIUM CHLORIDE [Concomitant]
     Active Substance: POTASSIUM CHLORIDE
     Route: 048
  13. SOLIFENACIN [Concomitant]
     Active Substance: SOLIFENACIN
     Route: 048
  14. TRADJENTA [Concomitant]
     Active Substance: LINAGLIPTIN
     Route: 048
  15. TRAMADOL [Concomitant]
     Active Substance: TRAMADOL
     Route: 048
  16. VITAMIN D3 [Concomitant]
     Active Substance: CHOLECALCIFEROL
     Dosage: 25 MCG (1000 UNIT)
     Route: 065

REACTIONS (5)
  - Diabetes mellitus [Unknown]
  - Myocardial infarction [Unknown]
  - Paraesthesia [Unknown]
  - Memory impairment [Unknown]
  - Hypoacusis [Unknown]
